FAERS Safety Report 7356304-6 (Version None)
Quarter: 2011Q1

REPORT INFORMATION
  Report Type: 
  Country: None (occurrence: None)
  Receive Date: 20110308
  Receipt Date: 20110218
  Transmission Date: 20110831
  Serious: Yes (Other)
  Sender: FDA-Public Use
  Company Number: 2011S1000091

PATIENT
  Age: 38 Year
  Sex: Female

DRUGS (7)
  1. RIVOTRIL [Concomitant]
  2. LIVALO [Suspect]
     Indication: HYPERCHOLESTEROLAEMIA
     Dosage: 1 MG;1X;PO ; 2 MG;1X;PO
     Route: 048
     Dates: start: 20090623, end: 20110119
  3. LIVALO [Suspect]
     Indication: HYPERCHOLESTEROLAEMIA
     Dosage: 1 MG;1X;PO ; 2 MG;1X;PO
     Route: 048
     Dates: start: 20090526, end: 20090622
  4. DEPROMEL /00615202/ [Concomitant]
  5. VOGLIBOSE [Concomitant]
  6. MIGLITOL [Suspect]
     Indication: DIABETES MELLITUS
     Dosage: 50 MG;TID;PO
     Route: 048
     Dates: start: 20090623, end: 20110119
  7. DIAZEPAM [Concomitant]

REACTIONS (5)
  - DRUG EXPOSURE DURING PREGNANCY [None]
  - PREGNANCY [None]
  - DIABETES MELLITUS INADEQUATE CONTROL [None]
  - ABORTION MISSED [None]
  - STRESS [None]
